FAERS Safety Report 17671123 (Version 1)
Quarter: 2020Q2

REPORT INFORMATION
  Report Type: Report from Study
  Country: US (occurrence: US)
  Receive Date: 20200415
  Receipt Date: 20200415
  Transmission Date: 20200713
  Serious: Yes (Other)
  Sender: FDA-Public Use
  Company Number: US-PUMA BIOTECHNOLOGY, LTD.-2019US010015

PATIENT

DRUGS (3)
  1. NERLYNX [Suspect]
     Active Substance: NERATINIB
     Indication: BREAST CANCER
     Dosage: 120 MG, 3 TABLETS, DAILY
     Route: 048
     Dates: start: 20190914
  2. NERLYNX [Suspect]
     Active Substance: NERATINIB
     Dosage: 160 MG, 4 TABLETS, DAILY
     Route: 048
  3. IMODIUM [Concomitant]
     Active Substance: LOPERAMIDE HYDROCHLORIDE
     Indication: PROPHYLAXIS AGAINST DIARRHOEA

REACTIONS (10)
  - Lung disorder [Unknown]
  - Diarrhoea [Not Recovered/Not Resolved]
  - Dry skin [Unknown]
  - Breast cancer stage IV [Unknown]
  - Off label use [Unknown]
  - Underdose [Unknown]
  - Fatigue [Unknown]
  - Headache [Unknown]
  - Eructation [Unknown]
  - Flatulence [Unknown]

NARRATIVE: CASE EVENT DATE: 2019
